FAERS Safety Report 19589731 (Version 1)
Quarter: 2021Q3

REPORT INFORMATION
  Report Type: Spontaneous
  Country: US (occurrence: US)
  Receive Date: 20210721
  Receipt Date: 20210721
  Transmission Date: 20211014
  Serious: Yes (Death)
  Sender: FDA-Public Use
  Company Number: US-CUMBERLAND-2021-US-000022

PATIENT
  Age: 62 Year
  Sex: Female

DRUGS (1)
  1. REDITREX [Suspect]
     Active Substance: METHOTREXATE

REACTIONS (2)
  - Pneumocystis jirovecii pneumonia [Fatal]
  - SARS-CoV-2 antibody test positive [Fatal]
